FAERS Safety Report 24830173 (Version 1)
Quarter: 2025Q1

REPORT INFORMATION
  Report Type: Spontaneous
  Country: DE (occurrence: DE)
  Receive Date: 20250110
  Receipt Date: 20250110
  Transmission Date: 20250409
  Serious: Yes (Other)
  Sender: ACCORD
  Company Number: DE-EMA-20141105-schoudharyp-113859400

PATIENT
  Age: 76 Year
  Sex: Female

DRUGS (1)
  1. DOCETAXEL [Suspect]
     Active Substance: DOCETAXEL
     Indication: Non-small cell lung cancer stage IIIB

REACTIONS (7)
  - Ill-defined disorder [Unknown]
  - Haemorrhage [Unknown]
  - Erythema [Unknown]
  - Pruritus [Unknown]
  - Inflammation [Unknown]
  - Scab [Unknown]
  - Seborrhoeic keratosis [Not Recovered/Not Resolved]

NARRATIVE: CASE EVENT DATE: 20130101
